FAERS Safety Report 17861890 (Version 1)
Quarter: 2020Q2

REPORT INFORMATION
  Report Type: Spontaneous
  Country: ES (occurrence: ES)
  Receive Date: 20200604
  Receipt Date: 20200604
  Transmission Date: 20200714
  Serious: Yes (Other)
  Sender: FDA-Public Use
  Company Number: ES-JNJFOC-20200532908

PATIENT
  Age: 6 Year
  Sex: Male

DRUGS (1)
  1. RISPERDAL [Suspect]
     Active Substance: RISPERIDONE
     Indication: PRODUCT USED FOR UNKNOWN INDICATION
     Dosage: DOSIS INDICADA 0.5 ML CADA 24 HORAS, SE ADMINISTRA POR ERROR 5 ML.; IN TOTAL
     Route: 048
     Dates: start: 20200318, end: 20200318

REACTIONS (3)
  - Incorrect dose administered [Unknown]
  - Oculogyric crisis [Recovered/Resolved]
  - Torticollis [Recovered/Resolved]

NARRATIVE: CASE EVENT DATE: 20200318
